FAERS Safety Report 7238713-9 (Version None)
Quarter: 2011Q1

REPORT INFORMATION
  Report Type: 
  Country: None (occurrence: None)
  Receive Date: 20110121
  Receipt Date: 20110112
  Transmission Date: 20110831
  Serious: Yes (Death)
  Sender: FDA-Public Use
  Company Number: DE-ACTELION-A-CH2010-42942

PATIENT

DRUGS (1)
  1. TRACLEER [Suspect]
     Dosage: UNK , UNK
     Route: 048

REACTIONS (1)
  - DEATH [None]
